FAERS Safety Report 21404562 (Version 1)
Quarter: 2022Q4

REPORT INFORMATION
  Report Type: Spontaneous
  Country: DE (occurrence: DE)
  Receive Date: 20221003
  Receipt Date: 20221003
  Transmission Date: 20230112
  Serious: Yes (Hospitalization, Other)
  Sender: FDA-Public Use
  Company Number: DE-ADRED-08361-01

PATIENT
  Age: 66 Year
  Sex: Male
  Weight: 70 kg

DRUGS (11)
  1. CARBOPLATIN [Suspect]
     Active Substance: CARBOPLATIN
     Indication: Product used for unknown indication
     Dosage: SCHEME?ROA-20045000
     Route: 042
  2. FLUOROURACIL [Suspect]
     Active Substance: FLUOROURACIL
     Indication: Product used for unknown indication
     Dosage: SCHEME?ROA-20045000
     Route: 042
  3. Acetylsalicyls?re [Concomitant]
     Indication: Product used for unknown indication
     Dosage: 100 MG, 1-0-0-0
     Route: 065
  4. GRANISETRON [Concomitant]
     Active Substance: GRANISETRON
     Indication: Product used for unknown indication
     Dosage: 2 MG, AS NEEDED
     Route: 065
  5. PANTOPRAZOLE SODIUM [Concomitant]
     Active Substance: PANTOPRAZOLE SODIUM
     Indication: Product used for unknown indication
     Dosage: 40 MG, 1-0-0-0
     Route: 065
  6. LEVOTHYROXINE SODIUM [Concomitant]
     Active Substance: LEVOTHYROXINE SODIUM
     Indication: Product used for unknown indication
     Dosage: 88 MICROGRAM, 1-0-0-0
     Route: 065
  7. PREDNISOLONE [Concomitant]
     Active Substance: PREDNISOLONE
     Indication: Product used for unknown indication
     Dosage: 25 MG, 1-0-0-0
     Route: 065
  8. Ursodeoxychols?re [Concomitant]
     Indication: Product used for unknown indication
     Dosage: 250 MG, 1-1-1-0
     Route: 065
  9. METOCLOPRAMIDE [Concomitant]
     Active Substance: METOCLOPRAMIDE
     Indication: Product used for unknown indication
     Dosage: 10 MG, AS NEEDED
     Route: 065
  10. BUTYLSCOPOLAMIN [Concomitant]
     Indication: Product used for unknown indication
     Dosage: 10 MG, AS NEEDED
     Route: 065
  11. METAMIZOL [Concomitant]
     Active Substance: METAMIZOLE SODIUM
     Indication: Product used for unknown indication
     Dosage: 30 DROPS, 1-1-1-1
     Route: 065

REACTIONS (14)
  - Chest pain [None]
  - Orthostatic intolerance [None]
  - Dizziness [None]
  - Hypotension [None]
  - Tachypnoea [None]
  - Cold sweat [None]
  - Abdominal pain [None]
  - Diarrhoea [None]
  - Anaemia [None]
  - General physical health deterioration [None]
  - Cough [None]
  - Condition aggravated [None]
  - Systemic infection [None]
  - Dyspnoea [None]
